FAERS Safety Report 8793133 (Version 1)
Quarter: 2012Q4

REPORT INFORMATION
  Report Type: 
  Country: US (occurrence: US)
  Receive Date: 20120917
  Receipt Date: 20120917
  Transmission Date: 20130627
  Serious: No
  Sender: FDA-Public Use
  Company Number: US-PFIZER INC-2012228407

PATIENT
  Sex: Female

DRUGS (2)
  1. ADVIL [Suspect]
     Indication: GASTROINTESTINAL PAIN
     Dosage: UNK
     Dates: start: 20120914
  2. ASPIRIN [Suspect]
     Indication: MUSCLE SPASMS
     Dosage: 81 mg, daily

REACTIONS (3)
  - Gastrointestinal disorder [Unknown]
  - Gastrointestinal pain [Unknown]
  - Circumstance or information capable of leading to medication error [Unknown]
